FAERS Safety Report 5449370-6 (Version None)
Quarter: 2007Q3

REPORT INFORMATION
  Report Type: 
  Country: None (occurrence: None)
  Receive Date: 20070911
  Receipt Date: 20070830
  Transmission Date: 20080115
  Serious: No
  Sender: FDA-Public Use
  Company Number: GB-PFIZER INC-2007068096

PATIENT
  Age: 52 Year
  Sex: Male

DRUGS (3)
  1. EPANUTIN INJECTABLE [Suspect]
     Route: 042
  2. DILANTIN [Suspect]
  3. DOXYCYCLINE [Suspect]

REACTIONS (1)
  - NO ADVERSE REACTION [None]
